FAERS Safety Report 6016270-2 (Version None)
Quarter: 2008Q4

REPORT INFORMATION
  Report Type: 
  Country: None (occurrence: None)
  Receive Date: 20081218
  Receipt Date: 20081203
  Transmission Date: 20090506
  Serious: Yes (Hospitalization)
  Sender: FDA-Public Use
  Company Number: KV200800870

PATIENT
  Age: 60 Year
  Sex: Female
  Weight: 59 kg

DRUGS (8)
  1. ISOSORBIDE MONONITRATE [Suspect]
     Indication: CARDIAC FAILURE CONGESTIVE
     Dosage: 60 MG, QD, ORAL
     Route: 048
     Dates: start: 20050101
  2. POTASSIUM (POTASSIUM) [Concomitant]
  3. LISINOPRIL [Concomitant]
  4. TRAZODONE HCL [Concomitant]
  5. EFFEXOR         /01233801/ (VENLAFAXINE) [Concomitant]
  6. SPIRONOLACTONE [Concomitant]
  7. CARVEDILOL [Concomitant]
  8. MAGOXIDE [Concomitant]

REACTIONS (2)
  - CHEST PAIN [None]
  - PRODUCT QUALITY ISSUE [None]
